FAERS Safety Report 12630985 (Version 2)
Quarter: 2016Q3

REPORT INFORMATION
  Report Type: Spontaneous
  Country: US (occurrence: US)
  Receive Date: 20160808
  Receipt Date: 20160808
  Transmission Date: 20161109
  Serious: No
  Sender: FDA-Public Use
  Company Number: US-BEH-2015051730

PATIENT
  Age: 30 Year
  Sex: Female
  Weight: 72.6 kg

DRUGS (19)
  1. HIZENTRA [Suspect]
     Active Substance: HUMAN IMMUNOGLOBULIN G
     Indication: IMMUNODEFICIENCY COMMON VARIABLE
     Dosage: 2 G 10 ML VIAL
     Route: 058
  2. LMX [Concomitant]
     Active Substance: LIDOCAINE
     Dosage: 4% PRIOR
     Route: 061
  3. ADVAIR HFA [Concomitant]
     Active Substance: FLUTICASONE PROPIONATE\SALMETEROL XINAFOATE
     Dosage: 100-50 UD
     Route: 055
  4. ALBUTEROL SULFATE. [Concomitant]
     Active Substance: ALBUTEROL SULFATE
     Dosage: HFA
     Route: 055
  5. HYDROXYZINE HYDROCHLORIDE. [Concomitant]
     Active Substance: HYDROXYZINE HYDROCHLORIDE
     Route: 048
  6. CONCERTA [Concomitant]
     Active Substance: METHYLPHENIDATE HYDROCHLORIDE
     Route: 048
  7. IBUPROFEN. [Concomitant]
     Active Substance: IBUPROFEN
     Route: 048
  8. CLARINEX [Concomitant]
     Active Substance: DESLORATADINE
     Route: 048
  9. PEPPERMINT. [Concomitant]
     Active Substance: PEPPERMINT
     Indication: HEADACHE
     Dosage: UD
  10. LIDOCAINE/PRILOCAINE [Concomitant]
     Active Substance: LIDOCAINE\PRILOCAINE
     Dosage: 2.5% PRIOR
     Route: 061
  11. LAVENDER [Concomitant]
     Indication: HEADACHE
     Dosage: UD
  12. DIPHENHYDRAMINE. [Concomitant]
     Active Substance: DIPHENHYDRAMINE
     Indication: ANAPHYLACTIC REACTION
     Route: 048
  13. JUNEL FE 1/20 [Concomitant]
     Active Substance: ETHINYL ESTRADIOL\NORETHINDRONE ACETATE
     Dosage: 1 MG020 MCG
     Route: 048
  14. BIAXIN [Concomitant]
     Active Substance: CLARITHROMYCIN
     Route: 048
  15. IMITREX [Concomitant]
     Active Substance: SUMATRIPTAN SUCCINATE
     Route: 048
  16. EPIPEN [Concomitant]
     Active Substance: EPINEPHRINE
     Indication: ANAPHYLACTIC REACTION
     Dosage: AUTO-INJECTOR
     Route: 030
  17. MEDROL [Concomitant]
     Active Substance: METHYLPREDNISOLONE
     Dosage: DOSEPAK
     Route: 048
  18. LOESTRIN NOS [Concomitant]
     Active Substance: ETHINYL ESTRADIOL\NORETHINDRONE ACETATE
     Dosage: 24 FE
     Route: 048
  19. TYLENOL [Concomitant]
     Active Substance: ACETAMINOPHEN
     Route: 048

REACTIONS (5)
  - Application site erythema [Unknown]
  - Unevaluable event [Unknown]
  - Administration site pain [Unknown]
  - Skin infection [Unknown]
  - Administration site swelling [Unknown]

NARRATIVE: CASE EVENT DATE: 20150529
